FAERS Safety Report 6006795-8 (Version None)
Quarter: 2008Q4

REPORT INFORMATION
  Report Type: 
  Country: None (occurrence: None)
  Receive Date: 20081217
  Receipt Date: 20080915
  Transmission Date: 20090506
  Serious: No
  Sender: FDA-Public Use
  Company Number: US-ASTRAZENECA-2004UW04428

PATIENT
  Age: 74 Year
  Sex: Female

DRUGS (7)
  1. CRESTOR [Suspect]
     Indication: BLOOD CHOLESTEROL INCREASED
     Route: 048
     Dates: start: 20040101, end: 20040305
  2. PROTONIX [Concomitant]
     Indication: GASTROOESOPHAGEAL REFLUX DISEASE
  3. SYNTHROID [Concomitant]
     Indication: HYPOTHYROIDISM
  4. PREMARIN [Concomitant]
  5. VALIUM [Concomitant]
     Indication: OESOPHAGEAL SPASM
  6. DARVOCET [Concomitant]
     Indication: BACK PAIN
  7. DARVOCET [Concomitant]
     Indication: ARTHRALGIA

REACTIONS (5)
  - ANOREXIA [None]
  - ASTHENIA [None]
  - DIZZINESS [None]
  - MYALGIA [None]
  - WEIGHT DECREASED [None]
